FAERS Safety Report 13549754 (Version 1)
Quarter: 2017Q2

REPORT INFORMATION
  Report Type: Spontaneous
  Country: US (occurrence: US)
  Receive Date: 20170516
  Receipt Date: 20170516
  Transmission Date: 20170830
  Serious: Yes (Life-Threatening, Disabling)
  Sender: FDA-Public Use
  Company Number: None

PATIENT
  Age: 86 Year
  Sex: Male
  Weight: 68.04 kg

DRUGS (5)
  1. LANTUS SOLOSTAR [Suspect]
     Active Substance: INSULIN GLARGINE
     Indication: DIABETES MELLITUS
     Dosage: ROUTE - INJECTION
     Dates: start: 1993, end: 20161220
  2. LISINPHLL/TAMSULOSIN [Concomitant]
  3. ALLERGY RELIEF/VISION FORMULA [Concomitant]
  4. VITAMIN D3 [Concomitant]
     Active Substance: CHOLECALCIFEROL
  5. NIACIN. [Concomitant]
     Active Substance: NIACIN

REACTIONS (4)
  - Adverse drug reaction [None]
  - Depression [None]
  - Drug ineffective [None]
  - Nocturia [None]

NARRATIVE: CASE EVENT DATE: 1995
